FAERS Safety Report 6179963-2 (Version None)
Quarter: 2009Q2

REPORT INFORMATION
  Report Type: 
  Country: None (occurrence: None)
  Receive Date: 20090501
  Receipt Date: 20090420
  Transmission Date: 20091009
  Serious: Yes (Other)
  Sender: FDA-Public Use
  Company Number: 234365K09USA

PATIENT
  Age: 36 Year
  Sex: Male
  Weight: 129 kg

DRUGS (3)
  1. REBIF [Suspect]
     Indication: MULTIPLE SCLEROSIS
     Dosage: 44 MCG, 3 IN 1 WEEKS, SUBCUTANEOUS
     Route: 058
     Dates: start: 20080204
  2. GABAPENTIN [Concomitant]
  3. ELAVIL [Concomitant]

REACTIONS (3)
  - CEREBRAL CYST [None]
  - MUSCLE SPASMS [None]
  - UNEVALUABLE EVENT [None]
